FAERS Safety Report 19609210 (Version 1)
Quarter: 2021Q3

REPORT INFORMATION
  Report Type: Spontaneous
  Country: US (occurrence: US)
  Receive Date: 20210725
  Receipt Date: 20210725
  Transmission Date: 20211014
  Serious: No
  Sender: FDA-Public Use
  Company Number: None

PATIENT
  Age: 23 Year
  Sex: Female
  Weight: 120.15 kg

DRUGS (2)
  1. PAIN?A?TRATE EXTRA STRENGTH PAIN?RELIEVING [Suspect]
     Active Substance: CAMPHOR (SYNTHETIC)\MENTHOL\METHYL SALICYLATE
     Indication: LIGAMENT SPRAIN
     Route: 061
     Dates: start: 20210722, end: 20210725
  2. SERTRALINE [Concomitant]
     Active Substance: SERTRALINE HYDROCHLORIDE

REACTIONS (1)
  - Chemical burn [None]

NARRATIVE: CASE EVENT DATE: 20210724
